FAERS Safety Report 6653822-0 (Version None)
Quarter: 2010Q1

REPORT INFORMATION
  Report Type: 
  Country: None (occurrence: None)
  Receive Date: 20100326
  Receipt Date: 20100317
  Transmission Date: 20100710
  Serious: Yes (Hospitalization)
  Sender: FDA-Public Use
  Company Number: B0634949A

PATIENT
  Age: 53 Year
  Sex: Female
  Weight: 67 kg

DRUGS (5)
  1. LAPATINIB [Suspect]
     Indication: BREAST CANCER
     Route: 048
     Dates: start: 20100202, end: 20100214
  2. PACLITAXEL [Suspect]
     Indication: BREAST CANCER
     Dosage: 300MG CYCLIC
     Route: 042
     Dates: start: 20100202, end: 20100202
  3. MYOCET [Suspect]
     Indication: BREAST CANCER
     Dosage: 103MG PER DAY
     Route: 042
     Dates: start: 20100202, end: 20100202
  4. RAMIPRIL [Concomitant]
     Indication: HYPERTENSION
     Route: 048
     Dates: start: 20050601
  5. THYROXIN [Concomitant]
     Route: 048
     Dates: start: 20050601

REACTIONS (1)
  - PYREXIA [None]
